FAERS Safety Report 4998649-0 (Version None)
Quarter: 2006Q2

REPORT INFORMATION
  Report Type: 
  Country: None (occurrence: None)
  Receive Date: 20060509
  Receipt Date: 20060502
  Transmission Date: 20061013
  Serious: Yes (Death)
  Sender: FDA-Public Use
  Company Number: GXKR2006DE02149

PATIENT
  Age: 64 Year
  Sex: Female

DRUGS (2)
  1. SIMVASTATIN [Suspect]
     Indication: HYPERLIPIDAEMIA
     Dosage: 80 MG
  2. CICLOSPORIN (NGX) (CICLOSPORIN) UNKNOWN [Suspect]

REACTIONS (6)
  - CARDIAC FAILURE ACUTE [None]
  - DIALYSIS [None]
  - DRUG INTERACTION [None]
  - HYPERLIPIDAEMIA [None]
  - RHABDOMYOLYSIS [None]
  - THERAPY NON-RESPONDER [None]
